FAERS Safety Report 5295530-7 (Version None)
Quarter: 2007Q2

REPORT INFORMATION
  Report Type: 
  Country: None (occurrence: None)
  Receive Date: 20070405
  Receipt Date: 20070320
  Transmission Date: 20071010
  Serious: Yes (Death, Life-Threatening)
  Sender: FDA-Public Use
  Company Number: 239015

PATIENT
  Age: 60 Year
  Sex: Male

DRUGS (2)
  1. MABTHERA (RITUXIMAB) CONCENTRATE FOR SOLUTION FOR INFUSION [Suspect]
     Indication: DRUG USE FOR UNKNOWN INDICATION
  2. NO STUDY DRUG ADMINISTERED (NO STUDY DRUG ADMINISTERED) NOT APPLICABLE [Suspect]
     Indication: NON-HODGKIN'S LYMPHOMA

REACTIONS (2)
  - OBLITERATIVE BRONCHIOLITIS [None]
  - PULMONARY EMBOLISM [None]
